FAERS Safety Report 4446648-X (Version None)
Quarter: 2004Q3

REPORT INFORMATION
  Report Type: 
  Country: None (occurrence: None)
  Receive Date: 20040902
  Receipt Date: 20040823
  Transmission Date: 20050211
  Serious: Yes (Hospitalization)
  Sender: FDA-Public Use
  Company Number: 2004-119215-NL

PATIENT
  Age: 24 Year
  Sex: Female

DRUGS (1)
  1. VARNOLINE [Suspect]
     Dosage: DF
     Dates: start: 20040723, end: 20040806

REACTIONS (1)
  - PANCREATITIS ACUTE [None]
